FAERS Safety Report 4748396-5 (Version None)
Quarter: 2005Q3

REPORT INFORMATION
  Report Type: 
  Country: None (occurrence: None)
  Receive Date: 20050815
  Receipt Date: 20050524
  Transmission Date: 20060218
  Serious: No
  Sender: FDA-Public Use
  Company Number: USA050598832

PATIENT
  Age: 84 Year
  Sex: Male

DRUGS (6)
  1. CIALIS [Suspect]
     Dosage: 20 MG
  2. ZOCOR [Concomitant]
  3. METFORMIN HCL [Concomitant]
  4. DIPYRIDAMOLE [Concomitant]
  5. PROSCAR [Concomitant]
  6. ASPIRIN [Concomitant]

REACTIONS (1)
  - THERAPEUTIC RESPONSE DECREASED [None]
